FAERS Safety Report 16319847 (Version 1)
Quarter: 2019Q2

REPORT INFORMATION
  Report Type: Spontaneous
  Country: US (occurrence: US)
  Receive Date: 20190410
  Receipt Date: 20190410
  Transmission Date: 20190711
  Serious: Yes (Hospitalization)
  Sender: FDA-Public Use
  Company Number: None

PATIENT
  Sex: Female

DRUGS (8)
  1. FUROSEMIDE. [Concomitant]
     Active Substance: FUROSEMIDE
  2. CARVEDILOL. [Concomitant]
     Active Substance: CARVEDILOL
  3. LOSARTAN. [Concomitant]
     Active Substance: LOSARTAN
  4. ALBUTEROL. [Concomitant]
     Active Substance: ALBUTEROL
  5. TOBRAMYCIN 300MG/5ML [Suspect]
     Active Substance: TOBRAMYCIN
     Indication: PRODUCT USED FOR UNKNOWN INDICATION
     Route: 055
     Dates: start: 20171108
  6. MONTELUKAST [Concomitant]
     Active Substance: MONTELUKAST SODIUM
  7. SODIUM CHLORIDE. [Concomitant]
     Active Substance: SODIUM CHLORIDE
  8. FLUTICASONE. [Concomitant]
     Active Substance: FLUTICASONE

REACTIONS (3)
  - Fall [None]
  - Pneumonia [None]
  - Lower limb fracture [None]
